FAERS Safety Report 7275516-3 (Version None)
Quarter: 2011Q1

REPORT INFORMATION
  Report Type: 
  Country: None (occurrence: None)
  Receive Date: 20110204
  Receipt Date: 20110127
  Transmission Date: 20110831
  Serious: Yes (Death)
  Sender: FDA-Public Use
  Company Number: DE-CELGENEUS-062-50794-11012711

PATIENT
  Age: 65 Year
  Sex: Female
  Weight: 83 kg

DRUGS (3)
  1. MCP [Concomitant]
     Indication: CHEMOTHERAPY
     Dates: start: 20110124, end: 20110125
  2. VIDAZA [Suspect]
     Route: 058
     Dates: start: 20110124, end: 20110125
  3. PREDNISONE [Concomitant]
     Indication: CHEMOTHERAPY
     Route: 048

REACTIONS (1)
  - CIRCULATORY COLLAPSE [None]
